FAERS Safety Report 25484028 (Version 2)
Quarter: 2025Q3

REPORT INFORMATION
  Report Type: Spontaneous
  Country: CH (occurrence: CH)
  Receive Date: 20250626
  Receipt Date: 20250711
  Transmission Date: 20251021
  Serious: Yes (Death, Life-Threatening, Hospitalization, Other)
  Sender: SANDOZ
  Company Number: None

PATIENT
  Age: 84 Year
  Sex: Male

DRUGS (17)
  1. ELIQUIS [Suspect]
     Active Substance: APIXABAN
     Indication: Atrial fibrillation
     Dosage: 5 MG, BID; 1 SEPARATED DOSES
     Route: 048
     Dates: end: 20250501
  2. METHOTREXATE SODIUM [Suspect]
     Active Substance: METHOTREXATE SODIUM
     Indication: Polyarthritis
     Dosage: 10 MG, QW
     Route: 048
     Dates: start: 201305
  3. POLYETHYLENE GLYCOL 3350\POTASSIUM CHLORIDE\SODIUM BICARBONATE\SODIUM [Suspect]
     Active Substance: POLYETHYLENE GLYCOL 3350\POTASSIUM CHLORIDE\SODIUM BICARBONATE\SODIUM CHLORIDE
     Indication: Product used for unknown indication
     Route: 048
  4. BENSERAZIDE HYDROCHLORIDE\LEVODOPA [Suspect]
     Active Substance: BENSERAZIDE HYDROCHLORIDE\LEVODOPA
     Route: 065
  5. BENSERAZIDE HYDROCHLORIDE\LEVODOPA [Suspect]
     Active Substance: BENSERAZIDE HYDROCHLORIDE\LEVODOPA
     Indication: Parkinson^s disease
     Route: 048
  6. Bucco-tantum [Concomitant]
     Indication: Product used for unknown indication
     Route: 002
  7. DAFALGAN [Concomitant]
     Active Substance: ACETAMINOPHEN
     Indication: Product used for unknown indication
     Dosage: 500 MG, QD
     Route: 048
  8. Duloxetin sandoz [Concomitant]
     Indication: Product used for unknown indication
     Route: 048
  9. Lacri vision [Concomitant]
     Indication: Product used for unknown indication
     Route: 047
  10. LISINOPRIL [Concomitant]
     Active Substance: LISINOPRIL
     Indication: Cardiomyopathy
     Dosage: 10 MG, QD
     Route: 048
  11. BENSERAZIDE HYDROCHLORIDE\LEVODOPA [Concomitant]
     Active Substance: BENSERAZIDE HYDROCHLORIDE\LEVODOPA
     Indication: Parkinson^s disease
     Dosage: 1 SEPARATED DOSES
     Route: 048
  12. BENSERAZIDE HYDROCHLORIDE\LEVODOPA [Concomitant]
     Active Substance: BENSERAZIDE HYDROCHLORIDE\LEVODOPA
     Indication: Parkinson^s disease
     Dosage: 0.5 DF, QD, 0.5 PIECES 1X DAILY
     Route: 048
  13. Neo angin mit lidocain und chlorhexidin [Concomitant]
     Indication: Product used for unknown indication
     Route: 002
  14. NEUPRO [Concomitant]
     Active Substance: ROTIGOTINE
     Indication: Parkinson^s disease
     Dosage: 1 MATRIX PATCH RELEASES 2 MG OF ROTIGOTIN IN 24 H
     Route: 003
  15. TAMSULOSIN HYDROCHLORIDE [Concomitant]
     Active Substance: TAMSULOSIN HYDROCHLORIDE
     Indication: Benign prostatic hyperplasia
     Route: 048
  16. TORSEMIDE [Concomitant]
     Active Substance: TORSEMIDE
     Indication: Cardiomyopathy
     Dosage: 10 MG, QD
     Route: 048
  17. CHOLECALCIFEROL [Concomitant]
     Active Substance: CHOLECALCIFEROL
     Indication: Osteopenia
     Route: 048

REACTIONS (5)
  - Pancytopenia [Fatal]
  - Coagulopathy [Fatal]
  - Skin haemorrhage [Fatal]
  - Mouth ulceration [Fatal]
  - Mouth haemorrhage [Fatal]

NARRATIVE: CASE EVENT DATE: 20250425
